FAERS Safety Report 24591636 (Version 1)
Quarter: 2024Q4

REPORT INFORMATION
  Report Type: Spontaneous
  Country: US (occurrence: US)
  Receive Date: 20241108
  Receipt Date: 20241108
  Transmission Date: 20250115
  Serious: No
  Sender: GLAUKOS
  Company Number: US-GLK-002388

PATIENT
  Age: 30 Year

DRUGS (2)
  1. PHOTREXA [Suspect]
     Active Substance: RIBOFLAVIN 5^-PHOSPHATE SODIUM
     Indication: Keratoconus
     Route: 047
  2. PHOTREXA VISCOUS [Suspect]
     Active Substance: RIBOFLAVIN 5^-PHOSPHATE SODIUM
     Indication: Keratoconus
     Route: 047

REACTIONS (4)
  - Corneal infiltrates [Unknown]
  - Corneal lesion [Unknown]
  - Photophobia [Unknown]
  - Vision blurred [Unknown]
